FAERS Safety Report 6317135-9 (Version None)
Quarter: 2009Q3

REPORT INFORMATION
  Report Type: 
  Country: None (occurrence: None)
  Receive Date: 20090819
  Receipt Date: 20090806
  Transmission Date: 20100115
  Serious: Yes (Hospitalization)
  Sender: FDA-Public Use
  Company Number: 230864K09USA

PATIENT
  Age: 58 Year
  Sex: Female
  Weight: 61 kg

DRUGS (13)
  1. REBIF [Suspect]
     Indication: MULTIPLE SCLEROSIS
     Dosage: 44 MCG, 3 IN 1 WEEKS, SUBCUTANEOUS
     Route: 058
     Dates: start: 20060101, end: 20090101
  2. NORVASC [Concomitant]
  3. NEURONTIN [Concomitant]
  4. KLONOPIN [Concomitant]
  5. IBUPROFEN [Concomitant]
  6. ASPIRIN [Concomitant]
  7. BACLOFEN [Concomitant]
  8. MS CONTIN [Concomitant]
  9. PREVACID [Concomitant]
  10. COLACE (DOCUSATE SODIUM) [Concomitant]
  11. ZANTAC 150 [Concomitant]
  12. LISINOPRIL [Concomitant]
  13. DETROL LA [Concomitant]

REACTIONS (8)
  - CHEST PAIN [None]
  - CONVULSION [None]
  - DIPLOPIA [None]
  - DYSPNOEA [None]
  - HEADACHE [None]
  - INFLUENZA [None]
  - RESPIRATORY ARREST [None]
  - VISION BLURRED [None]
